FAERS Safety Report 16808608 (Version 1)
Quarter: 2019Q3

REPORT INFORMATION
  Report Type: Spontaneous
  Country: ES (occurrence: ES)
  Receive Date: 20190916
  Receipt Date: 20190916
  Transmission Date: 20191005
  Serious: Yes (Other)
  Sender: FDA-Public Use
  Company Number: ES-ABBVIE-19K-144-2925986-00

PATIENT
  Age: 50 Year
  Sex: Female
  Weight: 67 kg

DRUGS (5)
  1. DOBUPAL [Concomitant]
     Active Substance: VENLAFAXINE HYDROCHLORIDE
     Indication: PRODUCT USED FOR UNKNOWN INDICATION
     Dosage: 37.5 MGC/24 H
     Route: 048
  2. USTEKINUMAB [Suspect]
     Active Substance: USTEKINUMAB
     Indication: PSORIATIC ARTHROPATHY
     Dosage: 45 MG WEEK 0 AND WEEK 4
     Route: 058
     Dates: start: 20190115, end: 20190219
  3. HUMIRA [Suspect]
     Active Substance: ADALIMUMAB
     Indication: PRODUCT USED FOR UNKNOWN INDICATION
     Route: 058
     Dates: start: 201004, end: 201502
  4. ANSIUM [Concomitant]
     Indication: PRODUCT USED FOR UNKNOWN INDICATION
     Dosage: C/12H?30 CAPSULE
     Route: 048
  5. USTEKINUMAB [Suspect]
     Active Substance: USTEKINUMAB
     Route: 058

REACTIONS (1)
  - Cutaneous lupus erythematosus [Recovered/Resolved]

NARRATIVE: CASE EVENT DATE: 20190315
